FAERS Safety Report 8339401-8 (Version None)
Quarter: 2012Q2

REPORT INFORMATION
  Report Type: 
  Country: None (occurrence: None)
  Receive Date: 20120507
  Receipt Date: 20120430
  Transmission Date: 20120825
  Serious: Yes (Hospitalization)
  Sender: FDA-Public Use
  Company Number: US-B.I. PHARMACEUTICALS,INC./RIDGEFIELD-2012-BP-09819BP

PATIENT
  Age: 62 Year
  Sex: Male
  Weight: 123 kg

DRUGS (13)
  1. ALLOPURINOL [Concomitant]
  2. ROSUVASTATIN [Concomitant]
  3. TOPIRAMATE [Concomitant]
  4. PRADAXA [Suspect]
     Indication: CEREBROVASCULAR ACCIDENT PROPHYLAXIS
     Dosage: 300 MG
     Route: 048
     Dates: end: 20120429
  5. INSULIN [Concomitant]
  6. VITAMIN D [Concomitant]
  7. CITALOPRAM HYDROBROMIDE [Concomitant]
  8. PRADAXA [Suspect]
     Indication: ATRIAL FIBRILLATION
  9. TRAZODONE HCL [Concomitant]
  10. FLECAINIDE ACETATE [Concomitant]
  11. GABAPENTIN [Concomitant]
  12. PRINZIDE [Concomitant]
  13. VALPROIC ACID [Concomitant]

REACTIONS (4)
  - HAEMATURIA [None]
  - GINGIVAL BLEEDING [None]
  - UPPER GASTROINTESTINAL HAEMORRHAGE [None]
  - LOWER GASTROINTESTINAL HAEMORRHAGE [None]
